FAERS Safety Report 7978073-9 (Version None)
Quarter: 2011Q4

REPORT INFORMATION
  Report Type: 
  Country: None (occurrence: None)
  Receive Date: 20111214
  Receipt Date: 20111202
  Transmission Date: 20120403
  Serious: Yes (Disabling, Other)
  Sender: FDA-Public Use
  Company Number: GB-AMGEN-GBRSP2011038551

PATIENT
  Age: 57 Year
  Sex: Female
  Weight: 60 kg

DRUGS (12)
  1. LEVOTHYROXINE SODIUM [Concomitant]
     Indication: HYPOTHYROIDISM
     Dosage: 25 MG, 2X/DAY
     Route: 058
     Dates: start: 20000101
  2. PREDNISOLONE [Concomitant]
     Indication: RHEUMATOID ARTHRITIS
     Dosage: 5 MG, 1X/DAY
     Route: 048
  3. PREDNISOLONE [Concomitant]
     Dosage: 2.5 MG, 1X/DAY
  4. MIRTAZAPINE [Concomitant]
     Indication: DEPRESSED MOOD
  5. ENBREL [Suspect]
     Indication: RHEUMATOID ARTHRITIS
     Dosage: 25 MG, 2 TIMES/WK
     Route: 058
     Dates: start: 20020301, end: 20110707
  6. OMEPRAZOLE [Concomitant]
     Indication: GASTROINTESTINAL DISORDER
     Dosage: 20 MG, 1X/DAY
     Route: 048
  7. ENBREL [Suspect]
     Dosage: 25 MG, 2X/WEEK
     Route: 058
     Dates: start: 20020301, end: 20110707
  8. RISEDRONATE SODIUM [Concomitant]
     Indication: OSTEOPOROSIS
     Dosage: 35 MG, WEEKLY
     Route: 048
  9. MIRTAZAPINE [Concomitant]
     Indication: INSOMNIA
  10. MIRTAZAPINE [Concomitant]
     Indication: DEPRESSION
     Dosage: 15 MG, 1X/DAY
  11. MELOXICAM [Concomitant]
     Indication: PAIN
     Dosage: 15 MG, 1X/DAY
     Route: 048
  12. MIRTAZAPINE [Concomitant]

REACTIONS (12)
  - INJECTION SITE DISCOMFORT [None]
  - GAIT DISTURBANCE [None]
  - MUSCLE SPASMS [None]
  - HEPATITIS ACUTE [None]
  - PARAESTHESIA [None]
  - PAIN IN EXTREMITY [None]
  - CONTUSION [None]
  - AUTOIMMUNE HEPATITIS [None]
  - URINARY TRACT INFECTION [None]
  - RESTLESS LEGS SYNDROME [None]
  - DEMYELINATION [None]
  - STIFF-MAN SYNDROME [None]
